FAERS Safety Report 7340025-X (Version None)
Quarter: 2011Q1

REPORT INFORMATION
  Report Type: 
  Country: None (occurrence: None)
  Receive Date: 20110309
  Receipt Date: 20110301
  Transmission Date: 20110831
  Serious: Yes (Hospitalization)
  Sender: FDA-Public Use
  Company Number: US-CEPHALON-2011000981

PATIENT
  Sex: Female
  Weight: 123 kg

DRUGS (7)
  1. PANTOPRAZOLE [Concomitant]
     Dates: start: 20090101
  2. ESTRADIOL [Concomitant]
     Dates: start: 19910101
  3. CRESTOR [Concomitant]
  4. PROVIGIL [Suspect]
     Route: 048
     Dates: start: 20100101
  5. MIRAPEX [Concomitant]
     Dates: start: 20100101
  6. DICLOFENAC [Concomitant]
  7. METOPROLOL [Concomitant]
     Dates: start: 20010101

REACTIONS (3)
  - ABSCESS LIMB [None]
  - KNEE OPERATION [None]
  - CELLULITIS [None]
